FAERS Safety Report 6011712-0 (Version None)
Quarter: 2008Q4

REPORT INFORMATION
  Report Type: 
  Country: None (occurrence: None)
  Receive Date: 20081218
  Receipt Date: 19900712
  Transmission Date: 20090506
  Serious: Yes (Death)
  Sender: FDA-Public Use
  Company Number: US-ROCHE-900200808001

PATIENT
  Age: 62 Year
  Sex: Male

DRUGS (2)
  1. ROFERON-A [Suspect]
     Indication: MALIGNANT MELANOMA
     Route: 058
  2. ANALGESICS [Concomitant]
     Route: 065

REACTIONS (1)
  - DISEASE PROGRESSION [None]
